FAERS Safety Report 10401649 (Version 2)
Quarter: 2014Q3

REPORT INFORMATION
  Report Type: Spontaneous
  Country: US (occurrence: US)
  Receive Date: 20140822
  Receipt Date: 20140822
  Transmission Date: 20150326
  Serious: Yes (Other)
  Sender: FDA-Public Use
  Company Number: US-RANBAXY-2009RR-26428

PATIENT
  Age: 56 Year
  Sex: Male

DRUGS (9)
  1. ARIPIPRAZOLE [Suspect]
     Active Substance: ARIPIPRAZOLE
     Indication: AFFECTIVE DISORDER
     Dosage: 15 MG, QD
     Route: 048
  2. CYCLOPHOSPHAMIDE. [Concomitant]
     Active Substance: CYCLOPHOSPHAMIDE
     Indication: B-CELL LYMPHOMA
     Route: 065
  3. ONCONVIN [Concomitant]
     Indication: B-CELL LYMPHOMA
     Route: 065
  4. LAMOTRIGINE. [Concomitant]
     Active Substance: LAMOTRIGINE
     Indication: AFFECTIVE DISORDER
     Route: 065
  5. RISPERIDONE. [Suspect]
     Active Substance: RISPERIDONE
     Indication: AFFECTIVE DISORDER
     Dosage: 0.5 MG, BID
     Route: 048
  6. HYDROXYDAUNORUBICIN [Concomitant]
     Active Substance: DOXORUBICIN
     Indication: B-CELL LYMPHOMA
     Route: 065
  7. PREDNISOLONE. [Concomitant]
     Active Substance: PREDNISOLONE
     Indication: B-CELL LYMPHOMA
     Route: 065
  8. PREDNISONE. [Concomitant]
     Active Substance: PREDNISONE
     Indication: B-CELL LYMPHOMA
     Route: 065
  9. RITUXIMAB [Concomitant]
     Active Substance: RITUXIMAB
     Indication: B-CELL LYMPHOMA
     Route: 065

REACTIONS (1)
  - Inappropriate antidiuretic hormone secretion [Recovered/Resolved]
